FAERS Safety Report 16877642 (Version 5)
Quarter: 2020Q1

REPORT INFORMATION
  Report Type: Spontaneous
  Country: US (occurrence: US)
  Receive Date: 20191002
  Receipt Date: 20200225
  Transmission Date: 20200409
  Serious: No
  Sender: FDA-Public Use
  Company Number: US-PFIZER INC-2019423696

PATIENT
  Age: 57 Year
  Sex: Female
  Weight: 65.77 kg

DRUGS (8)
  1. LYRICA CR [Suspect]
     Active Substance: PREGABALIN
     Indication: MUSCLE TIGHTNESS
  2. LYRICA CR [Suspect]
     Active Substance: PREGABALIN
     Indication: MUSCLE SPASMS
  3. MELOXICAM. [Concomitant]
     Active Substance: MELOXICAM
     Indication: INFLAMMATION
     Dosage: 15 MG, AS NEEDED
  4. LYRICA CR [Suspect]
     Active Substance: PREGABALIN
     Indication: MYALGIA
  5. DICLOFENAC [Concomitant]
     Active Substance: DICLOFENAC
     Indication: INFLAMMATION
     Dosage: UNK
  6. LYRICA CR [Suspect]
     Active Substance: PREGABALIN
     Indication: NEURALGIA
     Dosage: 165 MG, 1X/DAY
     Route: 048
     Dates: start: 201908
  7. ESTROGEN [Concomitant]
     Active Substance: ESTROGENS
     Indication: MENOPAUSE
     Dosage: UNK
  8. ESTRADIOL. [Concomitant]
     Active Substance: ESTRADIOL
     Indication: OESTROGEN REPLACEMENT THERAPY
     Dosage: UNK UNK, 2X/WEEK (0.375)
     Dates: start: 201208

REACTIONS (3)
  - Memory impairment [Not Recovered/Not Resolved]
  - Therapeutic product effect incomplete [Not Recovered/Not Resolved]
  - Muscular weakness [Unknown]

NARRATIVE: CASE EVENT DATE: 2019
